FAERS Safety Report 23859631 (Version 2)
Quarter: 2024Q2

REPORT INFORMATION
  Report Type: Spontaneous
  Country: US (occurrence: None)
  Receive Date: 20240515
  Receipt Date: 20240612
  Transmission Date: 20240716
  Serious: Yes (Hospitalization)
  Sender: FDA-Public Use
  Company Number: 2024A107986

PATIENT
  Sex: Male

DRUGS (1)
  1. BYDUREON BCISE [Suspect]
     Active Substance: EXENATIDE
     Dosage: 2.0MG UNKNOWN

REACTIONS (7)
  - Animal attack [Unknown]
  - Glucose tolerance impaired [Unknown]
  - Muscular weakness [Unknown]
  - Pain in extremity [Unknown]
  - Animal bite [Unknown]
  - Wrong technique in device usage process [Unknown]
  - Device malfunction [Unknown]
